FAERS Safety Report 11329010 (Version 1)
Quarter: 2015Q3

REPORT INFORMATION
  Report Type: Report from Study
  Country: US (occurrence: US)
  Receive Date: 20150802
  Receipt Date: 20150802
  Transmission Date: 20151125
  Serious: Yes (Other)
  Sender: FDA-Public Use
  Company Number: US-BAYER-2015-384271

PATIENT
  Sex: Male

DRUGS (1)
  1. VARDENAFIL [Suspect]
     Active Substance: VARDENAFIL
     Indication: ERECTILE DYSFUNCTION

REACTIONS (1)
  - Optic ischaemic neuropathy [None]
